FAERS Safety Report 12183272 (Version 1)
Quarter: 2016Q1

REPORT INFORMATION
  Report Type: Spontaneous
  Country: AR (occurrence: AR)
  Receive Date: 20160316
  Receipt Date: 20160316
  Transmission Date: 20160526
  Serious: Yes (Other)
  Sender: FDA-Public Use
  Company Number: AR-PFIZER INC-2016152214

PATIENT
  Age: 58 Year
  Sex: Male

DRUGS (1)
  1. SUTENT [Suspect]
     Active Substance: SUNITINIB MALATE
     Indication: METASTATIC RENAL CELL CARCINOMA
     Dosage: 50 MG, CYCLIC (4/2 SCHEME)
     Dates: start: 20141209

REACTIONS (6)
  - Abasia [Unknown]
  - Hyperkeratosis [Unknown]
  - Glossodynia [Unknown]
  - Joint stiffness [Unknown]
  - Yellow skin [Unknown]
  - Oral pain [Unknown]

NARRATIVE: CASE EVENT DATE: 2016
